FAERS Safety Report 7645455-4 (Version None)
Quarter: 2011Q3

REPORT INFORMATION
  Report Type: 
  Country: None (occurrence: None)
  Receive Date: 20110729
  Receipt Date: 20110718
  Transmission Date: 20111222
  Serious: Yes (Other)
  Sender: FDA-Public Use
  Company Number: GB-ELI_LILLY_AND_COMPANY-GB201107004433

PATIENT
  Age: 73 Year
  Sex: Male

DRUGS (4)
  1. RIVASTIGMINE [Concomitant]
     Indication: AMNESIA
     Dosage: 6 MG, BID
     Route: 048
     Dates: start: 20100101
  2. DULOXETINE HYDROCHLORIDE [Suspect]
     Indication: ANXIETY
     Dosage: 60 MG, UNK
     Route: 048
     Dates: start: 20110421, end: 20110614
  3. CO-BENELDOPA [Concomitant]
     Indication: PARKINSON'S DISEASE
     Dosage: 210 MG, UNK
     Route: 048
     Dates: start: 20050101
  4. QUETIAPINE [Concomitant]
     Indication: HALLUCINATION
     Dosage: 25 MG, UNK
     Route: 048
     Dates: start: 20100101

REACTIONS (4)
  - DECREASED APPETITE [None]
  - SOMNOLENCE [None]
  - RHINORRHOEA [None]
  - MOBILITY DECREASED [None]
